FAERS Safety Report 25635115 (Version 1)
Quarter: 2025Q3

REPORT INFORMATION
  Report Type: Spontaneous
  Country: US (occurrence: US)
  Receive Date: 20250802
  Receipt Date: 20250802
  Transmission Date: 20251021
  Serious: No
  Sender: LEADING PHARMA
  Company Number: US-LEADINGPHARMA-US-2025LEASPO00131

PATIENT

DRUGS (5)
  1. METOLAZONE [Suspect]
     Active Substance: METOLAZONE
     Indication: Swelling
     Route: 065
  2. TORSEMIDE [Concomitant]
     Active Substance: TORSEMIDE
     Indication: Swelling
     Route: 065
  3. SPIRONOLACTONE [Concomitant]
     Active Substance: SPIRONOLACTONE
     Indication: Swelling
     Route: 065
  4. BUMEX [Concomitant]
     Active Substance: BUMETANIDE
     Indication: Swelling
     Route: 065
  5. LASIX [Concomitant]
     Active Substance: FUROSEMIDE
     Indication: Swelling
     Route: 042

REACTIONS (1)
  - Drug ineffective [Unknown]
